FAERS Safety Report 19012812 (Version 1)
Quarter: 2021Q1

REPORT INFORMATION
  Report Type: Spontaneous
  Country: US (occurrence: US)
  Receive Date: 20210315
  Receipt Date: 20210315
  Transmission Date: 20210420
  Serious: No
  Sender: FDA-Public Use
  Company Number: US-MYLANLABS-2021M1014421

PATIENT
  Sex: Female
  Weight: 86 kg

DRUGS (1)
  1. AMNESTEEM [Suspect]
     Active Substance: ISOTRETINOIN
     Indication: ACNE
     Dosage: 40 MILLIGRAM, BID
     Route: 048
     Dates: start: 20210305, end: 20210308

REACTIONS (1)
  - Intercepted product dispensing error [Recovered/Resolved]
